FAERS Safety Report 6961262-X (Version None)
Quarter: 2010Q3

REPORT INFORMATION
  Report Type: 
  Country: None (occurrence: None)
  Receive Date: 20100901
  Receipt Date: 20100825
  Transmission Date: 20110219
  Serious: Yes (Other)
  Sender: FDA-Public Use
  Company Number: A0852996A

PATIENT
  Age: 47 Year
  Sex: Male

DRUGS (3)
  1. LAMICTAL [Suspect]
     Indication: EPILEPSY
     Dosage: 300MG TWICE PER DAY
     Route: 048
     Dates: start: 19970101
  2. LAMOTRIGINE [Suspect]
     Indication: EPILEPSY
     Route: 065
     Dates: start: 20090101
  3. NO CONCURRENT MEDICATION [Concomitant]

REACTIONS (6)
  - CENTRAL NERVOUS SYSTEM LESION [None]
  - CONVULSION [None]
  - LOSS OF CONSCIOUSNESS [None]
  - NEUROLOGICAL INFECTION [None]
  - PETIT MAL EPILEPSY [None]
  - PRODUCT QUALITY ISSUE [None]
